FAERS Safety Report 14385850 (Version 1)
Quarter: 2018Q1

REPORT INFORMATION
  Report Type: Spontaneous
  Country: US (occurrence: US)
  Receive Date: 20180115
  Receipt Date: 20180115
  Transmission Date: 20180509
  Serious: No
  Sender: FDA-Public Use
  Company Number: US-VANDA PHARMACEUTICALS, INC-2017TASUS001719

PATIENT
  Sex: Male

DRUGS (1)
  1. HETLIOZ [Suspect]
     Active Substance: TASIMELTEON
     Indication: BLINDNESS
     Dosage: 20 MG, QD
     Route: 048
     Dates: start: 20161006, end: 20170717

REACTIONS (4)
  - Middle insomnia [Unknown]
  - Hallucination [Not Recovered/Not Resolved]
  - Drug ineffective [Unknown]
  - Incorrect drug administration duration [Unknown]
